FAERS Safety Report 6673820-0 (Version None)
Quarter: 2010Q2

REPORT INFORMATION
  Report Type: 
  Country: None (occurrence: None)
  Receive Date: 20100407
  Receipt Date: 20100323
  Transmission Date: 20101027
  Serious: Yes (Hospitalization, Other)
  Sender: FDA-Public Use
  Company Number: CIP09003610

PATIENT
  Sex: Female

DRUGS (14)
  1. ACTONEL [Suspect]
     Indication: OSTEOPENIA
     Dosage: 35 MG ONCE A WEEK, ORAL
     Route: 048
     Dates: start: 20071130, end: 20091202
  2. ACTONEL [Suspect]
     Indication: OSTEOPOROSIS
     Dosage: 35 MG ONCE A WEEK, ORAL
     Route: 048
     Dates: start: 20071130, end: 20091202
  3. FOSAMAX [Suspect]
     Dates: start: 19980101, end: 20070901
  4. METFORMIN HCL [Concomitant]
  5. SINGULAIR /01362601/ (MONTELUKAST) [Concomitant]
  6. BENICAR HCT [Concomitant]
  7. ACTOS /01460201/ (PIOGLITAZONE) [Concomitant]
  8. LEXAPRO [Concomitant]
  9. ASPIRIN [Concomitant]
  10. TRAMADOL HCL [Concomitant]
  11. PLAVIX [Concomitant]
  12. AMLODIPINE [Concomitant]
  13. ATENOLOL [Concomitant]
  14. MELOXICAM [Concomitant]

REACTIONS (12)
  - ANAEMIA [None]
  - ARTHRALGIA [None]
  - BONE CALLUS EXCESSIVE [None]
  - BONE DISORDER [None]
  - FALL [None]
  - FEMUR FRACTURE [None]
  - GAIT DISTURBANCE [None]
  - LOW TURNOVER OSTEOPATHY [None]
  - PAIN IN EXTREMITY [None]
  - STRESS FRACTURE [None]
  - TENDERNESS [None]
  - WALKING AID USER [None]
